FAERS Safety Report 8177674-5 (Version None)
Quarter: 2012Q1

REPORT INFORMATION
  Report Type: 
  Country: None (occurrence: None)
  Receive Date: 20120301
  Receipt Date: 20120224
  Transmission Date: 20120608
  Serious: Yes (Other)
  Sender: FDA-Public Use
  Company Number: PHHY2012FR009218

PATIENT
  Sex: Female
  Weight: 85 kg

DRUGS (5)
  1. PREDNISOLONE [Concomitant]
     Indication: BRONCHITIS
     Dosage: 2 DF, UNK
     Route: 048
     Dates: start: 20111223, end: 20111226
  2. CORTICOSTEROIDS [Concomitant]
  3. ONBREZ [Suspect]
     Indication: CHRONIC OBSTRUCTIVE PULMONARY DISEASE
     Dosage: 1 DF, DAILY
     Dates: start: 20111223, end: 20111230
  4. AMOXICILLIN [Concomitant]
     Indication: BRONCHITIS
     Dosage: 3 DF, UNK
     Dates: start: 20111223, end: 20111229
  5. DIAMICRON [Concomitant]
     Indication: DIABETES MELLITUS
     Dosage: 2 DF, DAILY
     Route: 048
     Dates: start: 20090101

REACTIONS (3)
  - DIABETES MELLITUS INADEQUATE CONTROL [None]
  - BLOOD GLUCOSE INCREASED [None]
  - HEADACHE [None]
